FAERS Safety Report 12484642 (Version 5)
Quarter: 2018Q1

REPORT INFORMATION
  Report Type: Report from Study
  Country: JP (occurrence: JP)
  Receive Date: 20160621
  Receipt Date: 20180208
  Transmission Date: 20180508
  Serious: Yes (Hospitalization, Other)
  Sender: FDA-Public Use
  Company Number: JP-ASTELLAS-2009JP000023

PATIENT
  Age: 66 Year
  Sex: Female
  Weight: 47 kg

DRUGS (68)
  1. TACROLIMUS. [Suspect]
     Active Substance: TACROLIMUS
     Route: 048
     Dates: start: 20080305, end: 20090107
  2. PREDNISOLONE. [Suspect]
     Active Substance: PREDNISOLONE
     Route: 048
     Dates: start: 20080821, end: 20080924
  3. PREDNISOLONE. [Suspect]
     Active Substance: PREDNISOLONE
     Route: 048
     Dates: start: 20161006
  4. BONALON [Concomitant]
     Active Substance: ALENDRONATE SODIUM
     Indication: PROPHYLAXIS
     Route: 048
     Dates: start: 20080630, end: 20140528
  5. MICARDIS [Concomitant]
     Active Substance: TELMISARTAN
     Indication: HYPERTENSION
     Route: 048
     Dates: start: 20080123, end: 20160519
  6. FLOMOX                             /01418603/ [Concomitant]
     Active Substance: CEFCAPENE PIVOXIL HYDROCHLORIDE HYDRATE
     Indication: CYSTITIS
     Route: 048
     Dates: start: 20110119, end: 20110123
  7. ASTOMIN                            /00426502/ [Concomitant]
     Active Substance: DIMEMORFAN PHOSPHATE
     Indication: BRONCHITIS
     Route: 048
     Dates: start: 20130508, end: 20130510
  8. REBAMIPIDE [Concomitant]
     Active Substance: REBAMIPIDE
     Indication: BACK PAIN
     Dosage: UNK UNK, UNKNOWN FREQ.
     Route: 048
  9. DOMPERIDONE [Concomitant]
     Active Substance: DOMPERIDONE
     Indication: PROPHYLAXIS
     Route: 048
     Dates: start: 20150617, end: 20150630
  10. CELECOX [Concomitant]
     Active Substance: CELECOXIB
     Route: 048
     Dates: start: 20160914, end: 20160928
  11. CELLCEPT [Concomitant]
     Active Substance: MYCOPHENOLATE MOFETIL\MYCOPHENOLATE MOFETIL HYDROCHLORIDE
     Indication: LUPUS NEPHRITIS
     Route: 048
     Dates: start: 20160421, end: 20160727
  12. CARBOCISTEINE [Concomitant]
     Active Substance: CARBOCYSTEINE
     Indication: BRONCHITIS
     Route: 048
     Dates: start: 20151015, end: 20151020
  13. DIART [Concomitant]
     Active Substance: AZOSEMIDE
     Indication: OEDEMA
     Route: 065
     Dates: start: 20160728
  14. BONALON [Concomitant]
     Active Substance: ALENDRONATE SODIUM
     Route: 048
     Dates: start: 20140801
  15. ZETIA [Concomitant]
     Active Substance: EZETIMIBE
     Route: 048
     Dates: start: 20090108
  16. FAMOTIDINE. [Concomitant]
     Active Substance: FAMOTIDINE
     Indication: PROPHYLAXIS
     Route: 048
     Dates: start: 20141225, end: 20161109
  17. AMLODIPINE                         /00972402/ [Concomitant]
     Active Substance: AMLODIPINE BESYLATE
     Indication: HYPERTENSION
     Route: 048
     Dates: start: 20160209
  18. PREDNISOLONE. [Suspect]
     Active Substance: PREDNISOLONE
     Route: 048
     Dates: start: 20080925, end: 20081029
  19. ASTOMIN                            /00426502/ [Concomitant]
     Active Substance: DIMEMORFAN PHOSPHATE
     Indication: BRONCHITIS
     Route: 048
     Dates: start: 20120606, end: 20120612
  20. ASTOMIN                            /00426502/ [Concomitant]
     Active Substance: DIMEMORFAN PHOSPHATE
     Route: 048
     Dates: start: 20151015, end: 20151020
  21. ASTOMIN                            /00426502/ [Concomitant]
     Active Substance: DIMEMORFAN PHOSPHATE
     Route: 048
     Dates: start: 20160121, end: 20160125
  22. MUCOSTA [Concomitant]
     Active Substance: REBAMIPIDE
     Indication: PROPHYLAXIS
     Route: 048
     Dates: start: 20160914, end: 20160928
  23. SENNOSIDE                          /00571901/ [Concomitant]
     Active Substance: SENNOSIDES A AND B
     Indication: CONSTIPATION
     Dosage: UNK UNK, AS NEEDED  WHEN CONSTIPATED
     Route: 048
     Dates: start: 20130911, end: 20131211
  24. BENET [Concomitant]
     Active Substance: RISEDRONATE SODIUM
     Indication: PROPHYLAXIS
     Route: 048
     Dates: start: 20140529, end: 20140731
  25. LOXOPROFEN NA [Concomitant]
     Active Substance: LOXOPROFEN SODIUM
     Indication: OSTEOARTHRITIS
     Dosage: UNK UNK, AS NEEDED WHEN IN PAIN
     Route: 048
     Dates: start: 20150417
  26. REBAMIPIDE [Concomitant]
     Active Substance: REBAMIPIDE
     Indication: OSTEOARTHRITIS
     Dosage: UNK UNK, AS NEEDED WHEN IN PAIN
     Route: 048
     Dates: start: 20150417
  27. CARBOCISTEINE [Concomitant]
     Active Substance: CARBOCYSTEINE
     Indication: UPPER RESPIRATORY TRACT INFLAMMATION
     Route: 048
     Dates: start: 20160121, end: 20160125
  28. TACROLIMUS. [Suspect]
     Active Substance: TACROLIMUS
     Indication: LUPUS NEPHRITIS
     Route: 048
     Dates: start: 20080109, end: 20080304
  29. PREDNISOLONE. [Suspect]
     Active Substance: PREDNISOLONE
     Route: 048
     Dates: start: 20090108, end: 20090512
  30. TRAZENTA [Suspect]
     Active Substance: LINAGLIPTIN
     Indication: GLUCOSE TOLERANCE IMPAIRED
     Route: 048
     Dates: start: 20130911, end: 20130918
  31. CARDENALIN [Concomitant]
     Active Substance: DOXAZOSIN MESYLATE
     Indication: HYPERTENSION
     Route: 048
     Dates: start: 20111109, end: 20120424
  32. CLARITH [Concomitant]
     Active Substance: CLARITHROMYCIN
     Route: 048
     Dates: start: 20130508, end: 20130510
  33. CLARITH [Concomitant]
     Active Substance: CLARITHROMYCIN
     Route: 048
     Dates: start: 20140417, end: 20140421
  34. CLARITH [Concomitant]
     Active Substance: CLARITHROMYCIN
     Route: 048
     Dates: start: 20160121, end: 20160125
  35. CALONAL [Concomitant]
     Active Substance: ACETAMINOPHEN
     Indication: BRONCHITIS
     Route: 048
     Dates: start: 20151015, end: 20151020
  36. PL [Concomitant]
     Active Substance: ACETAMINOPHEN\CAFFEINE\PROMETHAZINE\SALICYLAMIDE
     Indication: BRONCHITIS
     Route: 048
     Dates: start: 20140305, end: 20140421
  37. RINDERON VG [Concomitant]
     Active Substance: BETAMETHASONE VALERATE\GENTAMICIN SULFATE
     Indication: ECZEMA
     Dosage: UNK UNK, SEVERAL TIMES/DAY
     Route: 061
     Dates: start: 20141225, end: 20150917
  38. TEPRENONE [Concomitant]
     Active Substance: TEPRENONE
     Indication: OSTEOARTHRITIS
     Dosage: UNK UNK, AS NEEDED WHEN IN PAIN
     Route: 048
     Dates: start: 20150610
  39. PREDNISOLONE. [Suspect]
     Active Substance: PREDNISOLONE
     Indication: LUPUS NEPHRITIS
     Route: 048
     Dates: start: 20080630, end: 20080820
  40. GASTER [Concomitant]
     Active Substance: FAMOTIDINE
     Indication: PROPHYLAXIS
     Route: 048
     Dates: start: 20080402, end: 20141224
  41. BASEN                              /01290601/ [Concomitant]
     Active Substance: VOGLIBOSE
     Indication: GLUCOSE TOLERANCE IMPAIRED
     Dosage: 0.9 MG, ONCE DAILY
     Route: 048
     Dates: start: 20090624, end: 20130829
  42. BIO-THREE [Concomitant]
     Active Substance: HERBALS
     Indication: CONSTIPATION
     Route: 048
     Dates: start: 20160901, end: 20161005
  43. CARDENALIN [Concomitant]
     Active Substance: DOXAZOSIN MESYLATE
     Route: 048
     Dates: start: 20120425, end: 20141224
  44. CALONAL [Concomitant]
     Active Substance: ACETAMINOPHEN
     Indication: INFLUENZA
     Route: 048
     Dates: start: 20130123, end: 20130127
  45. MUCOSTA [Concomitant]
     Active Substance: REBAMIPIDE
     Indication: INFLUENZA
     Route: 048
     Dates: start: 20130123, end: 20130127
  46. SENNOSIDE                          /00571901/ [Concomitant]
     Active Substance: SENNOSIDES A AND B
     Indication: CONSTIPATION
     Dosage: UNK UNK, AS NEEDED WHEN CONSTIPATED
     Route: 048
     Dates: start: 20150924, end: 20151023
  47. MOHRUS [Concomitant]
     Active Substance: KETOPROFEN
     Indication: BACK PAIN
     Route: 065
     Dates: start: 20150617
  48. FLOMOX                             /01418603/ [Concomitant]
     Active Substance: CEFCAPENE PIVOXIL HYDROCHLORIDE HYDRATE
     Indication: BRONCHITIS
     Route: 048
     Dates: start: 20151015, end: 20151020
  49. BIO-THREE [Concomitant]
     Active Substance: HERBALS
     Indication: ENTEROCOLITIS
     Route: 048
     Dates: start: 20110131, end: 20150402
  50. CLARITH [Concomitant]
     Active Substance: CLARITHROMYCIN
     Indication: BRONCHITIS
     Route: 048
     Dates: start: 20120606, end: 20120608
  51. CLARITH [Concomitant]
     Active Substance: CLARITHROMYCIN
     Indication: UPPER RESPIRATORY TRACT INFLAMMATION
     Route: 048
     Dates: start: 20120718, end: 20120720
  52. ASTOMIN                            /00426502/ [Concomitant]
     Active Substance: DIMEMORFAN PHOSPHATE
     Route: 048
     Dates: start: 20140305, end: 20140421
  53. EQUA [Concomitant]
     Active Substance: VILDAGLIPTIN
     Indication: GLUCOSE TOLERANCE IMPAIRED
     Route: 048
     Dates: start: 20131023, end: 20131211
  54. TRAMCET [Concomitant]
     Active Substance: ACETAMINOPHEN\TRAMADOL
     Indication: BACK PAIN
     Route: 048
     Dates: start: 20150617
  55. CELECOX [Concomitant]
     Active Substance: CELECOXIB
     Indication: BACK PAIN
     Route: 048
     Dates: start: 20150617, end: 20150915
  56. CELLCEPT [Concomitant]
     Active Substance: MYCOPHENOLATE MOFETIL\MYCOPHENOLATE MOFETIL HYDROCHLORIDE
     Route: 048
     Dates: start: 20160728
  57. TACROLIMUS. [Suspect]
     Active Substance: TACROLIMUS
     Route: 048
     Dates: start: 20090108
  58. PREDNISOLONE. [Suspect]
     Active Substance: PREDNISOLONE
     Route: 048
     Dates: start: 20081030, end: 20090107
  59. METHYLPREDNISOLONE. [Suspect]
     Active Substance: METHYLPREDNISOLONE
     Indication: LUPUS NEPHRITIS
     Route: 065
     Dates: start: 20080627, end: 20080629
  60. CALBLOCK [Concomitant]
     Active Substance: AZELNIDIPINE
     Indication: HYPERTENSION
     Route: 048
     Dates: start: 20080305, end: 20150528
  61. TAMIFLU [Concomitant]
     Active Substance: OSELTAMIVIR PHOSPHATE
     Indication: INFLUENZA
     Route: 048
     Dates: start: 20130123, end: 20130127
  62. RHUBARB. [Concomitant]
     Active Substance: RHUBARB
     Indication: CONSTIPATION
     Route: 048
     Dates: start: 20150924, end: 20151023
  63. DAIPHEN [Concomitant]
     Active Substance: SULFAMETHOXAZOLE\TRIMETHOPRIM
     Indication: PROPHYLAXIS
     Dosage: 0.5 DF, ONCE DAILY
     Route: 048
     Dates: start: 20160728
  64. PREDNISOLONE. [Suspect]
     Active Substance: PREDNISOLONE
     Route: 048
     Dates: start: 20090513, end: 20161005
  65. ZETIA [Concomitant]
     Active Substance: EZETIMIBE
     Indication: HYPERLIPIDAEMIA
     Route: 048
     Dates: start: 20080716, end: 20090107
  66. ASTOMIN                            /00426502/ [Concomitant]
     Active Substance: DIMEMORFAN PHOSPHATE
     Indication: UPPER RESPIRATORY TRACT INFLAMMATION
     Route: 048
     Dates: start: 20120718, end: 20120724
  67. DOXAZOSIN MESILATE [Concomitant]
     Active Substance: DOXAZOSIN MESYLATE
     Indication: HYPERTENSION
     Route: 048
     Dates: start: 20141225, end: 20150528
  68. REBAMIPIDE [Concomitant]
     Active Substance: REBAMIPIDE
     Indication: BRONCHITIS
     Route: 048
     Dates: start: 20151015, end: 20151020

REACTIONS (16)
  - Influenza [Recovered/Resolved]
  - Constipation [Recovered/Resolved]
  - Hypertension [Not Recovered/Not Resolved]
  - Hyperlipidaemia [Not Recovered/Not Resolved]
  - Oedema [Not Recovered/Not Resolved]
  - Cystitis [Recovered/Resolved]
  - Abdominal distension [Recovered/Resolved]
  - Back pain [Not Recovered/Not Resolved]
  - Eczema [Recovered/Resolved]
  - Glucose tolerance impaired [Not Recovered/Not Resolved]
  - Bronchitis [Recovered/Resolved]
  - Enterocolitis [Recovering/Resolving]
  - Upper respiratory tract inflammation [Recovered/Resolved]
  - Bronchitis [Recovered/Resolved]
  - Osteoarthritis [Recovering/Resolving]
  - Constipation [Recovered/Resolved]

NARRATIVE: CASE EVENT DATE: 20080123
